FAERS Safety Report 4528561-2 (Version None)
Quarter: 2004Q4

REPORT INFORMATION
  Report Type: 
  Country: None (occurrence: None)
  Receive Date: 20041216
  Receipt Date: 20041210
  Transmission Date: 20050328
  Serious: Yes (Hospitalization)
  Sender: FDA-Public Use
  Company Number: PHNU2004DE04173

PATIENT
  Age: 64 Year
  Sex: Female

DRUGS (2)
  1. CLOZARIL [Suspect]
     Indication: SCHIZOPHRENIA
     Dosage: UNKNOWN
     Route: 048
     Dates: end: 20041201
  2. CLOZARIL [Suspect]
     Dosage: UNKNOWN
     Route: 048
     Dates: start: 20041201

REACTIONS (4)
  - MENTAL DISORDER [None]
  - PYREXIA [None]
  - URINARY TRACT INFECTION [None]
  - UROSEPSIS [None]
